FAERS Safety Report 8132449 (Version 3)
Quarter: 2019Q3

REPORT INFORMATION
  Report Type: Spontaneous
  Country: BR (occurrence: BR)
  Receive Date: 20110909
  Receipt Date: 20190703
  Transmission Date: 20191005
  Serious: Yes (Hospitalization, Other)
  Sender: FDA-Public Use
  Company Number: BR-ROCHE-656357

PATIENT
  Sex: Female
  Weight: 59 kg

DRUGS (5)
  1. RIVOTRIL [Suspect]
     Active Substance: CLONAZEPAM
     Indication: PANIC DISORDER
     Dosage: DOSE: HALF TAB/DAY
     Route: 048
     Dates: start: 2001, end: 201108
  2. PROPOLIS [Suspect]
     Active Substance: PROPOLIS WAX
     Indication: RHINITIS
     Route: 065
     Dates: start: 2005, end: 200909
  3. PROPOLIS [Suspect]
     Active Substance: PROPOLIS WAX
     Indication: SINUSITIS
  4. FRONTAL [Interacting]
     Active Substance: ALPRAZOLAM
     Indication: PRODUCT USED FOR UNKNOWN INDICATION
     Route: 065
     Dates: start: 2007
  5. RIVOTRIL [Interacting]
     Active Substance: CLONAZEPAM
     Dosage: FREQUENCY: DAILY. DOSAGE WAS REDUCED AFTER STROKE
     Route: 048
     Dates: start: 2011

REACTIONS (12)
  - Anxiety [Not Recovered/Not Resolved]
  - Irritability [Not Recovered/Not Resolved]
  - Coma [Recovered/Resolved]
  - Drug ineffective [Unknown]
  - Tremor [Unknown]
  - Eye movement disorder [Unknown]
  - Ischaemic stroke [Recovered/Resolved]
  - Dyskinesia [Unknown]
  - Somnolence [Not Recovered/Not Resolved]
  - Hallucination [Recovered/Resolved]
  - Drug interaction [Unknown]
  - Mood altered [Not Recovered/Not Resolved]

NARRATIVE: CASE EVENT DATE: 2007
